FAERS Safety Report 4524164-4 (Version None)
Quarter: 2004Q4

REPORT INFORMATION
  Report Type: 
  Country: None (occurrence: None)
  Receive Date: 20041209
  Receipt Date: 20041129
  Transmission Date: 20050328
  Serious: Yes (Other)
  Sender: FDA-Public Use
  Company Number: 062-20785-04120151

PATIENT

DRUGS (2)
  1. THALIDOMIDE - PHARMION (THALIDOMIDE) [Suspect]
     Dosage: ORAL
     Route: 048
  2. OPIOIDES (OPIAT) [Suspect]

REACTIONS (2)
  - RENAL IMPAIRMENT [None]
  - SEDATION [None]
